FAERS Safety Report 12681075 (Version 1)
Quarter: 2016Q3

REPORT INFORMATION
  Report Type: Spontaneous
  Country: US (occurrence: US)
  Receive Date: 20160824
  Receipt Date: 20160824
  Transmission Date: 20161109
  Serious: No
  Sender: FDA-Public Use
  Company Number: US-MYLANLABS-2015M1037522

PATIENT
  Sex: Female

DRUGS (8)
  1. ALLOPURINOL. [Suspect]
     Active Substance: ALLOPURINOL
     Dosage: UNK
  2. OXYCODONE [Suspect]
     Active Substance: OXYCODONE
     Dosage: UNK
  3. OXYCODONE AND ACETAMINOPHEN [Suspect]
     Active Substance: ACETAMINOPHEN\OXYCODONE HYDROCHLORIDE
     Dosage: UNK
  4. CLONAZEPAM. [Suspect]
     Active Substance: CLONAZEPAM
     Dosage: UNK
  5. KLONOPIN [Suspect]
     Active Substance: CLONAZEPAM
     Dosage: UNK
  6. CHANTIX [Suspect]
     Active Substance: VARENICLINE TARTRATE
     Dosage: UNK
  7. AMBIEN [Suspect]
     Active Substance: ZOLPIDEM TARTRATE
     Dosage: UNK
  8. CLORAZEPIC ACID [Suspect]
     Active Substance: CLORAZEPIC ACID
     Dosage: UNK

REACTIONS (4)
  - Throat tightness [Unknown]
  - Drug interaction [Unknown]
  - Swollen tongue [Unknown]
  - Pharyngeal oedema [Unknown]
